FAERS Safety Report 19787871 (Version 14)
Quarter: 2022Q4

REPORT INFORMATION
  Report Type: Report from Study
  Country: CN (occurrence: CN)
  Receive Date: 20210903
  Receipt Date: 20221003
  Transmission Date: 20230113
  Serious: Yes (Hospitalization, Other)
  Sender: FDA-Public Use
  Company Number: CN-BRISTOL-MYERS SQUIBB COMPANY-BMS-2021-086719

PATIENT
  Age: 62 Year
  Sex: Male
  Weight: 60 kg

DRUGS (13)
  1. IPILIMUMAB [Suspect]
     Active Substance: IPILIMUMAB
     Indication: Non-small cell lung cancer
     Dosage: RECEIVED ONLY ONE DOSE
     Route: 042
     Dates: start: 20210708
  2. CARBOPLATIN [Suspect]
     Active Substance: CARBOPLATIN
     Indication: Non-small cell lung cancer
     Route: 042
     Dates: start: 20210416
  3. CARBOPLATIN [Suspect]
     Active Substance: CARBOPLATIN
     Route: 042
     Dates: start: 20210528
  4. PEMETREXED DISODIUM [Suspect]
     Active Substance: PEMETREXED DISODIUM
     Indication: Non-small cell lung cancer
     Route: 042
     Dates: start: 20210416
  5. PEMETREXED DISODIUM [Suspect]
     Active Substance: PEMETREXED DISODIUM
     Route: 042
     Dates: start: 20210528
  6. FOLIC ACID [Concomitant]
     Active Substance: FOLIC ACID
     Indication: Prophylaxis
     Dosage: ONGOING
     Route: 048
     Dates: start: 20210621
  7. ESOMEPRAZOLE SODIUM [Concomitant]
     Active Substance: ESOMEPRAZOLE SODIUM
     Indication: Immune-mediated lung disease
     Dosage: ONGOING
     Route: 042
     Dates: start: 20210721
  8. LEVOTHYROXINE SODIUM [Concomitant]
     Active Substance: LEVOTHYROXINE SODIUM
     Indication: Hypothyroidism
     Dosage: ONGOING
     Route: 048
     Dates: start: 20210830
  9. METHYLPREDNISOLONE SODIUM SUCCINATE [Concomitant]
     Active Substance: METHYLPREDNISOLONE SODIUM SUCCINATE
     Indication: Immune-mediated lung disease
     Route: 042
     Dates: start: 20210811, end: 20210813
  10. CEFTAZIDIME [Concomitant]
     Active Substance: CEFTAZIDIME
     Indication: Immune-mediated lung disease
     Dosage: ONGOING
     Route: 042
     Dates: start: 20210721
  11. CONCENTRATED SODIUM CHLORIDE INJECTION [Concomitant]
     Indication: Hyponatraemia
     Dosage: 1 DF= 30 UNIT NOS ONCE
     Route: 042
     Dates: start: 20210825, end: 20210825
  12. LORATADINE DISPERSIBLE TABLETS [Concomitant]
     Indication: Pyrexia
     Route: 048
     Dates: start: 20210820
  13. LORATADINE DISPERSIBLE TABLETS [Concomitant]
     Indication: Skin disorder

REACTIONS (2)
  - Radiation pneumonitis [Recovered/Resolved]
  - Pneumonia [Recovered/Resolved]

NARRATIVE: CASE EVENT DATE: 20210827
